FAERS Safety Report 16398260 (Version 1)
Quarter: 2019Q2

REPORT INFORMATION
  Report Type: Spontaneous
  Country: US (occurrence: US)
  Receive Date: 20190606
  Receipt Date: 20190606
  Transmission Date: 20190711
  Serious: No
  Sender: FDA-Public Use
  Company Number: US-PERRIGO-18US007535

PATIENT
  Age: 80 Year
  Sex: Female
  Weight: 44.44 kg

DRUGS (5)
  1. PERMETHRIN. [Suspect]
     Active Substance: PERMETHRIN
     Dosage: 30 G, SINGLE
     Route: 061
     Dates: start: 20180720, end: 20180720
  2. DULCOLAX (BISACODYL) [Concomitant]
     Active Substance: BISACODYL
     Indication: CONSTIPATION
     Dosage: UNK
     Route: 065
  3. PERMETHRIN. [Suspect]
     Active Substance: PERMETHRIN
     Dosage: 30 G, SINGLE
     Route: 061
     Dates: start: 2016, end: 2016
  4. PERMETHRIN. [Suspect]
     Active Substance: PERMETHRIN
     Indication: ACARODERMATITIS
     Dosage: 30 G, SINGLE
     Route: 061
     Dates: start: 2016, end: 2016
  5. PERMETHRIN. [Suspect]
     Active Substance: PERMETHRIN
     Dosage: 30 G, SINGLE
     Route: 061
     Dates: start: 20180713, end: 20180713

REACTIONS (4)
  - Application site pain [Not Recovered/Not Resolved]
  - Application site erythema [Not Recovered/Not Resolved]
  - Inappropriate schedule of product administration [Recovered/Resolved]
  - Drug ineffective [Unknown]

NARRATIVE: CASE EVENT DATE: 2016
